FAERS Safety Report 9540649 (Version 2)
Quarter: 2013Q4

REPORT INFORMATION
  Report Type: Spontaneous
  Country: DE (occurrence: DE)
  Receive Date: 20130920
  Receipt Date: 20131017
  Transmission Date: 20140711
  Serious: Yes (Other)
  Sender: FDA-Public Use
  Company Number: CHNY2013DE001989

PATIENT
  Sex: Male

DRUGS (1)
  1. OTRIVEN [Suspect]
     Indication: NASOPHARYNGITIS
     Dosage: UNK, UNK
     Route: 045
     Dates: start: 2013, end: 2013

REACTIONS (4)
  - Nasal congestion [Unknown]
  - Rebound effect [Unknown]
  - Incorrect dose administered [Unknown]
  - Wrong technique in drug usage process [Unknown]
